FAERS Safety Report 8091353 (Version 4)
Quarter: 2014Q1

REPORT INFORMATION
  Report Type: Spontaneous
  Country: US (occurrence: US)
  Receive Date: 20110816
  Receipt Date: 20140218
  Transmission Date: 20141002
  Serious: Yes (Hospitalization)
  Sender: FDA-Public Use
  Company Number: US-B.I. PHARMACEUTICALS,INC./RIDGEFIELD-2011-BP-19164BP

PATIENT
  Age: 61 Year
  Sex: Male
  Weight: 124.28 kg

DRUGS (15)
  1. PRADAXA [Suspect]
     Indication: ATRIAL FIBRILLATION
     Dosage: 300 MG
     Route: 048
     Dates: start: 20110214, end: 201108
  2. DILTIAZEM [Concomitant]
     Indication: HYPERTENSION
     Dosage: 240 MG
     Route: 048
  3. MELOXICAM [Concomitant]
     Indication: ARTHRITIS
     Dosage: 15 MG
     Route: 048
  4. OMEPRAZOLE [Concomitant]
     Indication: GASTROOESOPHAGEAL REFLUX DISEASE
     Dosage: 20 MG
     Route: 048
  5. TESTOSTERONE [Concomitant]
     Indication: ANDROGEN DEFICIENCY
     Route: 030
  6. CENTRUM SILVER [Concomitant]
     Indication: SUPPLEMENTATION THERAPY
     Route: 048
  7. CINNAMON [Concomitant]
     Indication: SUPPLEMENTATION THERAPY
     Dosage: 1000 MG
     Route: 048
  8. COQ10 [Concomitant]
     Indication: SUPPLEMENTATION THERAPY
     Dosage: 200 MG
     Route: 048
  9. OSTEOBIFLEX [Concomitant]
     Indication: SUPPLEMENTATION THERAPY
     Route: 048
  10. MEGA RED [Concomitant]
     Indication: SUPPLEMENTATION THERAPY
     Route: 048
  11. FLAX OIL [Concomitant]
     Indication: SUPPLEMENTATION THERAPY
     Dosage: 2000 MG
     Route: 048
  12. CARDIO B [Concomitant]
     Indication: SUPPLEMENTATION THERAPY
     Route: 048
  13. CHERRY EXTRACT [Concomitant]
     Indication: SUPPLEMENTATION THERAPY
     Route: 048
  14. BLOOD PRESSURE FACTOR [Concomitant]
     Indication: SUPPLEMENTATION THERAPY
     Route: 048
  15. NIACIN [Concomitant]
     Indication: SUPPLEMENTATION THERAPY
     Route: 048

REACTIONS (6)
  - Upper gastrointestinal haemorrhage [Unknown]
  - Anaemia [Unknown]
  - Coagulopathy [Unknown]
  - Pruritus [Not Recovered/Not Resolved]
  - Insomnia [Not Recovered/Not Resolved]
  - Restlessness [Not Recovered/Not Resolved]
